FAERS Safety Report 15867479 (Version 1)
Quarter: 2019Q1

REPORT INFORMATION
  Report Type: Spontaneous
  Country: BR (occurrence: BR)
  Receive Date: 20190125
  Receipt Date: 20190125
  Transmission Date: 20190417
  Serious: Yes (Other)
  Sender: FDA-Public Use
  Company Number: BR-US WORLDMEDS, LLC-USW201901-000139

PATIENT
  Sex: Female

DRUGS (1)
  1. TEGASEROD [Suspect]
     Active Substance: TEGASEROD
     Indication: PRODUCT USED FOR UNKNOWN INDICATION
     Route: 065

REACTIONS (1)
  - Drug dependence [Unknown]
